FAERS Safety Report 25036057 (Version 1)
Quarter: 2025Q1

REPORT INFORMATION
  Report Type: Spontaneous
  Country: US (occurrence: None)
  Receive Date: 20250303
  Receipt Date: 20250303
  Transmission Date: 20250409
  Serious: Yes (Hospitalization)
  Sender: FDA-CTU
  Company Number: None

PATIENT
  Age: 72 Year
  Sex: Female

DRUGS (1)
  1. TAGRISSO [Suspect]
     Active Substance: OSIMERTINIB
     Indication: Lung neoplasm malignant
     Dosage: 40 MG DAILY ORAL ?
     Route: 048
     Dates: start: 20241217

REACTIONS (3)
  - Diarrhoea [None]
  - Nausea [None]
  - Gastrointestinal bacterial infection [None]

NARRATIVE: CASE EVENT DATE: 20250222
